FAERS Safety Report 11190079 (Version 2)
Quarter: 2015Q3

REPORT INFORMATION
  Report Type: Spontaneous
  Country: JP (occurrence: JP)
  Receive Date: 20150615
  Receipt Date: 20150727
  Transmission Date: 20151125
  Serious: Yes (Hospitalization, Other)
  Sender: FDA-Public Use
  Company Number: JP-BRISTOL-MYERS SQUIBB COMPANY-BMS-2015-038063

PATIENT
  Age: 77 Year
  Sex: Female

DRUGS (3)
  1. CETUXIMAB [Suspect]
     Active Substance: CETUXIMAB
     Indication: TONGUE NEOPLASM MALIGNANT STAGE UNSPECIFIED
  2. CETUXIMAB [Suspect]
     Active Substance: CETUXIMAB
     Indication: HEAD AND NECK CANCER
     Dosage: 530 MG, QD
     Route: 041
     Dates: start: 20150519, end: 20150519
  3. MINOMYCIN [Suspect]
     Active Substance: MINOCYCLINE HYDROCHLORIDE
     Indication: PRODUCT USED FOR UNKNOWN INDICATION
     Dosage: 200 MG, QD
     Route: 048
     Dates: start: 20150519

REACTIONS (2)
  - Hepatic function abnormal [Recovered/Resolved]
  - Bone marrow failure [Unknown]

NARRATIVE: CASE EVENT DATE: 20150520
